FAERS Safety Report 6848684-2 (Version None)
Quarter: 2010Q3

REPORT INFORMATION
  Report Type: 
  Country: None (occurrence: None)
  Receive Date: 20100716
  Receipt Date: 20070904
  Transmission Date: 20110219
  Serious: No
  Sender: FDA-Public Use
  Company Number: US-PFIZER INC-2007074717

PATIENT
  Sex: Female
  Weight: 59.4 kg

DRUGS (5)
  1. CHANTIX [Suspect]
     Indication: SMOKING CESSATION THERAPY
     Dates: start: 20070822, end: 20070901
  2. ZYRTEC [Concomitant]
  3. CALCIUM [Concomitant]
  4. ALBUTEROL [Concomitant]
  5. MULTI-VITAMINS [Concomitant]

REACTIONS (1)
  - NOCTURIA [None]
